FAERS Safety Report 8943122 (Version 3)
Quarter: 2013Q1

REPORT INFORMATION
  Report Type: Spontaneous
  Country: US (occurrence: None)
  Receive Date: 20121121
  Receipt Date: 20130111
  Transmission Date: 20140127
  Serious: Yes (Other)
  Sender: FDA-Public Use
  Company Number: M-12-039

PATIENT
  Age: 63 Year
  Sex: Male

DRUGS (9)
  1. DIGOXIN [Suspect]
     Indication: HEART RATE INCREASED
     Route: 048
     Dates: start: 201209
  2. LANTUS [Concomitant]
  3. NOVOLOG [Concomitant]
  4. HYDROXYUREA [Concomitant]
  5. SIMVASTATIN [Concomitant]
  6. DIOVAN [Concomitant]
  7. ZOLPIDEM TARTRATE [Concomitant]
  8. PRADAXA [Concomitant]
  9. METOPROLOL TARTRATE [Concomitant]

REACTIONS (5)
  - Cardioactive drug level decreased [None]
  - Product quality issue [None]
  - Diplopia [None]
  - Muscular weakness [None]
  - Balance disorder [None]
